FAERS Safety Report 22602240 (Version 1)
Quarter: 2023Q2

REPORT INFORMATION
  Report Type: Spontaneous
  Country: GB (occurrence: GB)
  Receive Date: 20230614
  Receipt Date: 20230614
  Transmission Date: 20230721
  Serious: Yes (Hospitalization)
  Sender: FDA-Public Use
  Company Number: None

PATIENT
  Age: 74 Year
  Sex: Male

DRUGS (8)
  1. ARICEPT [Suspect]
     Active Substance: DONEPEZIL HYDROCHLORIDE
     Indication: Product used for unknown indication
     Route: 048
     Dates: start: 20221202, end: 20221212
  2. BISACODYL [Concomitant]
     Active Substance: BISACODYL
     Dates: start: 20220914
  3. CAFFEINE [Concomitant]
     Active Substance: CAFFEINE
  4. FUROSEMIDE [Concomitant]
     Active Substance: FUROSEMIDE
     Dates: start: 20220928, end: 202212
  5. GLYCOPYRRONIUM [Concomitant]
     Active Substance: GLYCOPYRRONIUM
     Indication: Salivary hypersecretion
     Dosage: 400 MICROGRAMS/ML 1.25 TO 2.5 ML  AS NEEDED
     Route: 048
     Dates: start: 20221004
  6. LEVOTHYROXINE [Concomitant]
     Active Substance: LEVOTHYROXINE
     Route: 048
     Dates: start: 20221128
  7. MEMANTINE [Concomitant]
     Active Substance: MEMANTINE
  8. PERINDOPRIL [Concomitant]
     Active Substance: PERINDOPRIL
     Dates: start: 20221114

REACTIONS (2)
  - Musculoskeletal stiffness [Recovered/Resolved]
  - Agitation [Unknown]

NARRATIVE: CASE EVENT DATE: 20221212
